FAERS Safety Report 11527241 (Version 5)
Quarter: 2016Q2

REPORT INFORMATION
  Report Type: Spontaneous
  Country: US (occurrence: US)
  Receive Date: 20150919
  Receipt Date: 20160405
  Transmission Date: 20160815
  Serious: Yes (Other)
  Sender: FDA-Public Use
  Company Number: US-009507513-1509USA009155

PATIENT
  Age: 19 Year
  Sex: Female
  Weight: 66.67 kg

DRUGS (4)
  1. NUVARING [Suspect]
     Active Substance: ETHINYL ESTRADIOL\ETONOGESTREL
     Indication: CONTRACEPTION
     Dosage: UNK
     Route: 067
  2. NUVARING [Suspect]
     Active Substance: ETHINYL ESTRADIOL\ETONOGESTREL
     Dosage: UNK
     Route: 067
     Dates: start: 20150723
  3. NEXPLANON [Suspect]
     Active Substance: ETONOGESTREL
     Indication: CONTRACEPTION
     Dosage: UNKNOWN
     Route: 059
     Dates: start: 20150730
  4. XARELTO [Concomitant]
     Active Substance: RIVAROXABAN
     Indication: ANTICOAGULANT THERAPY
     Dosage: UNK

REACTIONS (3)
  - Deep vein thrombosis [Recovered/Resolved]
  - Overdose [Unknown]
  - Medication error [Unknown]

NARRATIVE: CASE EVENT DATE: 20150730
